FAERS Safety Report 20812124 (Version 2)
Quarter: 2022Q2

REPORT INFORMATION
  Report Type: Spontaneous
  Country: US (occurrence: US)
  Receive Date: 20220511
  Receipt Date: 20220609
  Transmission Date: 20220721
  Serious: No
  Sender: FDA-Public Use
  Company Number: US-JNJFOC-20220514736

PATIENT
  Sex: Female
  Weight: 77.180 kg

DRUGS (1)
  1. XARELTO [Suspect]
     Active Substance: RIVAROXABAN
     Indication: Product used for unknown indication
     Route: 048
     Dates: start: 2021

REACTIONS (6)
  - Scratch [Unknown]
  - Headache [Unknown]
  - Rash pruritic [Unknown]
  - Impaired healing [Unknown]
  - Wound complication [Unknown]
  - Blister [Unknown]

NARRATIVE: CASE EVENT DATE: 20220501
